FAERS Safety Report 18109267 (Version 1)
Quarter: 2020Q3

REPORT INFORMATION
  Report Type: Spontaneous
  Country: US (occurrence: US)
  Receive Date: 20200804
  Receipt Date: 20200804
  Transmission Date: 20201103
  Serious: Yes (Other)
  Sender: FDA-Public Use
  Company Number: None

PATIENT
  Age: 76 Year
  Sex: Male
  Weight: 84.6 kg

DRUGS (16)
  1. LEVOTHROID [Concomitant]
     Active Substance: LEVOTHYROXINE SODIUM
  2. VIT D [Concomitant]
     Active Substance: VITAMIN D NOS
  3. TRINTILLIX [Concomitant]
  4. MULTIVITAMIN [Concomitant]
     Active Substance: VITAMINS
  5. SAW PALMETTO [Concomitant]
     Active Substance: HERBALS\SAW PALMETTO
  6. AMITIZA [Suspect]
     Active Substance: LUBIPROSTONE
     Indication: CONSTIPATION
     Dosage: ?          OTHER STRENGTH:MCG;QUANTITY:1 CAPSULE(S);?
     Route: 048
     Dates: start: 20200803, end: 20200804
  7. MICARDIS [Concomitant]
     Active Substance: TELMISARTAN
  8. ARANESP [Concomitant]
     Active Substance: DARBEPOETIN ALFA
  9. FISH OIL [Concomitant]
     Active Substance: FISH OIL
  10. VITAMIN B COMPLEX [Concomitant]
     Active Substance: CYANOCOBALAMIN\DEXPANTHENOL\NIACINAMIDE\PYRIDOXINE HYDROCHLORIDE\RIBOFLAVIN 5^-PHOSPHATE SODIUM\THIAMINE HYDROCHLORIDE\VITAMIN B COMPLEX
  11. FERROUS GLUCONATE [Concomitant]
     Active Substance: FERROUS GLUCONATE
  12. MINOXIDIL. [Concomitant]
     Active Substance: MINOXIDIL
  13. PROBIOTIC [Concomitant]
     Active Substance: PROBIOTICS NOS
  14. CARDURA [Concomitant]
     Active Substance: DOXAZOSIN MESYLATE
  15. ATORVASTATIN [Concomitant]
     Active Substance: ATORVASTATIN
  16. FRESSTYLE LIBRE CGM [Concomitant]

REACTIONS (5)
  - Nausea [None]
  - Hypotension [None]
  - Cold sweat [None]
  - Tachycardia [None]
  - Loss of consciousness [None]

NARRATIVE: CASE EVENT DATE: 20200804
